FAERS Safety Report 23293820 (Version 1)
Quarter: 2023Q4

REPORT INFORMATION
  Report Type: Spontaneous
  Country: US (occurrence: None)
  Receive Date: 20231213
  Receipt Date: 20231213
  Transmission Date: 20240110
  Serious: Yes (Hospitalization)
  Sender: FDA-Public Use
  Company Number: None

PATIENT
  Age: 51 Year
  Sex: Female

DRUGS (3)
  1. AMBRISENTAN [Suspect]
     Active Substance: AMBRISENTAN
     Indication: Heritable pulmonary arterial hypertension
     Dosage: 10MG QD ORAL?
     Route: 048
     Dates: start: 20230724
  2. AMBRISENTAN [Suspect]
     Active Substance: AMBRISENTAN
     Indication: Pulmonary arterial hypertension
  3. VELETRI [Suspect]
     Active Substance: EPOPROSTENOL

REACTIONS (9)
  - Respiratory failure [None]
  - Chronic kidney disease [None]
  - Coronary artery disease [None]
  - Coronary artery occlusion [None]
  - Abdominal pain [None]
  - Abdominal distension [None]
  - Hypervolaemia [None]
  - Urine output decreased [None]
  - Scleroderma [None]

NARRATIVE: CASE EVENT DATE: 20231125
